FAERS Safety Report 7533127-6 (Version None)
Quarter: 2011Q2

REPORT INFORMATION
  Report Type: 
  Country: None (occurrence: None)
  Receive Date: 20110608
  Receipt Date: 20020130
  Transmission Date: 20111010
  Serious: Yes (Hospitalization)
  Sender: FDA-Public Use
  Company Number: PHBS2002CA01597

PATIENT
  Sex: Female

DRUGS (2)
  1. EXELON [Suspect]
     Indication: DEMENTIA ALZHEIMER'S TYPE
     Route: 048
     Dates: start: 20010502
  2. EXELON [Suspect]
     Dosage: 4.5 MG, BID
     Route: 048
     Dates: start: 20010722, end: 20011206

REACTIONS (1)
  - CHEST PAIN [None]
